FAERS Safety Report 26128704 (Version 1)
Quarter: 2025Q4

REPORT INFORMATION
  Report Type: Spontaneous
  Country: US (occurrence: US)
  Receive Date: 20251208
  Receipt Date: 20251208
  Transmission Date: 20260118
  Serious: No
  Sender: AUROBINDO
  Company Number: US-AUROBINDO-AUR-APL-2025-008485

PATIENT
  Age: 9 Year
  Sex: Male

DRUGS (2)
  1. METHYLPHENIDATE HYDROCHLORIDE [Suspect]
     Active Substance: METHYLPHENIDATE HYDROCHLORIDE
     Indication: Attention deficit hyperactivity disorder
     Dosage: 10 MILLIGRAM
  2. METHYLPHENIDATE [Suspect]
     Active Substance: METHYLPHENIDATE
     Indication: Attention deficit hyperactivity disorder
     Dosage: 10 MILLIGRAM

REACTIONS (3)
  - Wrong technique in product usage process [Unknown]
  - Drug ineffective [Unknown]
  - Product use complaint [Unknown]
